FAERS Safety Report 19056978 (Version 1)
Quarter: 2021Q1

REPORT INFORMATION
  Report Type: Spontaneous
  Country: US (occurrence: US)
  Receive Date: 20210325
  Receipt Date: 20210325
  Transmission Date: 20210420
  Serious: No
  Sender: FDA-Public Use
  Company Number: US-GLAXOSMITHKLINE-USCH2021AMR015201

PATIENT
  Age: 43 Year
  Sex: Male
  Weight: 80 kg

DRUGS (3)
  1. ALAVERT ALLERGY [Suspect]
     Active Substance: LORATADINE
     Dosage: 10 UNK
     Route: 048
  2. ALAVERT ALLERGY [Suspect]
     Active Substance: LORATADINE
     Indication: MITE ALLERGY
     Dosage: 10 MG
     Route: 048
     Dates: start: 2001, end: 20210319
  3. MODERNA COVID?19 VACCINE [Suspect]
     Active Substance: CX-024414
     Indication: PRODUCT USED FOR UNKNOWN INDICATION
     Dosage: UNK

REACTIONS (3)
  - Drug ineffective [Unknown]
  - Expired product administered [Unknown]
  - Pruritus [Recovering/Resolving]
